FAERS Safety Report 8172133-8 (Version None)
Quarter: 2012Q1

REPORT INFORMATION
  Report Type: 
  Country: None (occurrence: None)
  Receive Date: 20120228
  Receipt Date: 20120223
  Transmission Date: 20120608
  Serious: Yes (Life-Threatening)
  Sender: FDA-Public Use
  Company Number: SE-ASTRAZENECA-2012SE12552

PATIENT
  Sex: Female

DRUGS (2)
  1. PULMICORT [Suspect]
     Route: 055
  2. FORMOTEROL FUMARATE [Suspect]
     Route: 055

REACTIONS (1)
  - ANAPHYLACTIC SHOCK [None]
